FAERS Safety Report 12762093 (Version 2)
Quarter: 2016Q3

REPORT INFORMATION
  Report Type: Report from Study
  Country: RU (occurrence: RU)
  Receive Date: 20160920
  Receipt Date: 20160929
  Transmission Date: 20161109
  Serious: Yes (Hospitalization)
  Sender: FDA-Public Use
  Company Number: PHHO2016RU013396

PATIENT
  Sex: Male
  Weight: 91 kg

DRUGS (5)
  1. TORASEMID [Concomitant]
     Active Substance: TORSEMIDE
     Indication: CARDIAC FAILURE
     Dosage: 7.5 MG, UNK
     Route: 048
     Dates: start: 20150401
  2. CARVEDILOLUM [Concomitant]
     Indication: ATRIAL FIBRILLATION
     Dosage: 37.5 MG, UNK
     Route: 048
     Dates: start: 20080101
  3. ENTRESTO [Suspect]
     Active Substance: SACUBITRIL\VALSARTAN
     Indication: CARDIAC FAILURE CHRONIC
     Dosage: 200 MG, BID
     Route: 048
     Dates: start: 20150829
  4. VARFARINA [Concomitant]
     Indication: ATRIAL FIBRILLATION
     Dosage: 7.5 MG, UNK
     Route: 048
     Dates: start: 20080101
  5. SPIRONOLACTONUM [Concomitant]
     Indication: CARDIAC FAILURE
     Dosage: 25 MG, UNK
     Route: 048
     Dates: start: 20100801

REACTIONS (1)
  - Mental disorder [Unknown]
